FAERS Safety Report 6821977-0 (Version None)
Quarter: 2010Q2

REPORT INFORMATION
  Report Type: 
  Country: None (occurrence: None)
  Receive Date: 20100630
  Receipt Date: 20100521
  Transmission Date: 20101027
  Serious: Yes (Hospitalization)
  Sender: FDA-Public Use
  Company Number: DE_TT_10_00002/DE-NLSPROD-NLSP000081

PATIENT
  Sex: Male

DRUGS (1)
  1. DEXRAZOXANE [Suspect]
     Indication: EXTRAVASATION
     Dosage: IV (NOT OTHERWISE SPECIFIED)
     Route: 042
     Dates: start: 20100301

REACTIONS (3)
  - DRUG INEFFECTIVE [None]
  - EXTRAVASATION [None]
  - SURGERY [None]
